FAERS Safety Report 14594496 (Version 3)
Quarter: 2018Q1

REPORT INFORMATION
  Report Type: Report from Study
  Country: IT (occurrence: IT)
  Receive Date: 20180302
  Receipt Date: 20180320
  Transmission Date: 20180509
  Serious: Yes (Other)
  Sender: FDA-Public Use
  Company Number: IT-PFIZER INC-2018085061

PATIENT
  Age: 36 Year
  Sex: Female

DRUGS (2)
  1. LEVETIRACETAM. [Suspect]
     Active Substance: LEVETIRACETAM
     Dosage: 3000 MG, DAILY
     Route: 048
  2. RUFINAMIDE [Suspect]
     Active Substance: RUFINAMIDE
     Indication: EPILEPSY
     Dosage: UNK

REACTIONS (1)
  - Abortion spontaneous [Unknown]
